FAERS Safety Report 5197189-6 (Version None)
Quarter: 2007Q1

REPORT INFORMATION
  Report Type: 
  Country: None (occurrence: None)
  Receive Date: 20070103
  Receipt Date: 20061222
  Transmission Date: 20070707
  Serious: Yes (Hospitalization)
  Sender: FDA-Public Use
  Company Number: US-ELI_LILLY_AND_COMPANY-US200611004920

PATIENT
  Age: 40 Year
  Sex: Male

DRUGS (12)
  1. HUMATROPE [Suspect]
     Indication: HYPOPITUITARISM
     Dates: start: 19790101
  2. HUMATROPE [Suspect]
     Dosage: UNK, UNK
     Dates: start: 20050101
  3. VERAPAMIL [Concomitant]
     Dosage: UNK, UNKNOWN
  4. DDAVP [Concomitant]
     Dosage: UNK, UNKNOWN
  5. SYNTHROID [Concomitant]
     Dosage: UNK, UNKNOWN
  6. HYDROCORTISONE [Concomitant]
     Dosage: UNK, UNKNOWN
  7. LIPITOR [Concomitant]
     Dosage: UNK, UNKNOWN
  8. PAXIL [Concomitant]
     Dosage: UNK, UNKNOWN
  9. VITAMIN CAP [Concomitant]
     Dosage: UNK, UNKNOWN
  10. ANDROGEL [Concomitant]
     Dosage: UNK, UNKNOWN
  11. CLARITIN                                /USA/ [Concomitant]
     Dosage: UNK, UNKNOWN
  12. NAPROXEN [Concomitant]
     Dosage: UNK, UNKNOWN

REACTIONS (2)
  - IMPULSIVE BEHAVIOUR [None]
  - PHARMACEUTICAL PRODUCT COMPLAINT [None]
